FAERS Safety Report 5816619-7 (Version None)
Quarter: 2008Q3

REPORT INFORMATION
  Report Type: 
  Country: None (occurrence: None)
  Receive Date: 20080721
  Receipt Date: 20080709
  Transmission Date: 20090109
  Serious: Yes (Other)
  Sender: FDA-Public Use
  Company Number: JP-PFIZER INC-2008033893

PATIENT
  Sex: Male
  Weight: 57 kg

DRUGS (3)
  1. ZOLOFT [Suspect]
     Indication: DEPRESSION
     Route: 048
     Dates: start: 20080317, end: 20080409
  2. ARICEPT [Concomitant]
     Route: 048
  3. LENDORMIN [Concomitant]
     Route: 048

REACTIONS (8)
  - AGITATION [None]
  - DECREASED ACTIVITY [None]
  - DIET REFUSAL [None]
  - HALLUCINATION, AUDITORY [None]
  - MUSCLE TWITCHING [None]
  - NEUROLEPTIC MALIGNANT SYNDROME [None]
  - RESTLESSNESS [None]
  - SEROTONIN SYNDROME [None]
